FAERS Safety Report 17540022 (Version 1)
Quarter: 2020Q1

REPORT INFORMATION
  Report Type: Spontaneous
  Country: US (occurrence: US)
  Receive Date: 20200313
  Receipt Date: 20200313
  Transmission Date: 20200409
  Serious: No
  Sender: FDA-Public Use
  Company Number: US-SA-2020SA064579

PATIENT
  Age: 78 Year
  Sex: Female

DRUGS (2)
  1. OZEMPIC [Concomitant]
     Active Substance: SEMAGLUTIDE
  2. TOUJEO [Suspect]
     Active Substance: INSULIN GLARGINE
     Indication: TYPE 2 DIABETES MELLITUS
     Dosage: 16 IU, QD (EVERY EVENING)
     Route: 065

REACTIONS (4)
  - Injection site erosion [Unknown]
  - Muscle twitching [Recovered/Resolved]
  - Perivascular dermatitis [Unknown]
  - Wrong technique in device usage process [Unknown]
